FAERS Safety Report 10229885 (Version 1)
Quarter: 2014Q2

REPORT INFORMATION
  Report Type: Spontaneous
  Country: US (occurrence: None)
  Receive Date: 20140610
  Receipt Date: 20140610
  Transmission Date: 20141212
  Serious: Yes (Disabling, Other)
  Sender: FDA-Public Use
  Company Number: None

PATIENT
  Age: 57 Year
  Sex: Female
  Weight: 93.9 kg

DRUGS (13)
  1. REPAGLINIDE [Suspect]
     Indication: DIABETES MELLITUS
     Dosage: 1 PILL AT THE START OF EACH MEAL. 3X DAILY, TNE I TOOK TWO WITH DINNER ?3X  DAILY. 1@ BREAKFAST, 1@ LUNCH. I WAS TOLD TO TAKE 2@ DINNER ?BY MOUTH 15 MINUTES BEFORE MEALS.
     Route: 048
     Dates: start: 20140220, end: 20140516
  2. GLIPIZIDE [Concomitant]
  3. ATENOLOL [Concomitant]
  4. VITAMIN C [Concomitant]
  5. ONGLYZA [Concomitant]
  6. AZO [Concomitant]
  7. PRANDIN [Concomitant]
  8. HUMALOG [Concomitant]
  9. LANTUS [Concomitant]
  10. VITAMIN E [Concomitant]
  11. MULTI BETIC [Concomitant]
  12. CALTRATE [Concomitant]
  13. BENEFIBER [Concomitant]

REACTIONS (2)
  - Back pain [None]
  - Heart rate increased [None]
